FAERS Safety Report 9961793 (Version 1)
Quarter: 2014Q1

REPORT INFORMATION
  Report Type: Report from Study
  Country: US (occurrence: US)
  Receive Date: 20140305
  Receipt Date: 20140305
  Transmission Date: 20141002
  Serious: No
  Sender: FDA-Public Use
  Company Number: US-ABBVIE-13P-163-1113237-00

PATIENT
  Age: 50 Year
  Sex: Female

DRUGS (14)
  1. HUMIRA [Suspect]
     Indication: COLITIS ULCERATIVE
     Dosage: LOADING DOSE
     Dates: start: 20130617, end: 20130617
  2. COUMADIN [Concomitant]
     Indication: ANTICOAGULANT THERAPY
     Dosage: 5 MG EVERY OTHER DAY
  3. COUMADIN [Concomitant]
     Dosage: 7.5  EVERY OTHER DAY
  4. TEMAZEPAM [Concomitant]
     Indication: INSOMNIA
     Dosage: 30 MG 1 A DAY AT BEDTIME
  5. AMITRIPTYLINE [Concomitant]
     Indication: DEPRESSION
     Dosage: 150 MG 1 A DAY
  6. LEXAPRO [Concomitant]
     Dosage: 20 MG 1 A DAY AT BEDTIME
  7. ZANAFLEX [Concomitant]
     Indication: MUSCLE RELAXANT THERAPY
     Dosage: 4 MG 3 A DAY
  8. OXYCODONE [Concomitant]
     Indication: PAIN
     Dosage: 10-325 MG 4 A DAY
  9. TOPAMAX [Concomitant]
     Indication: MIGRAINE
     Dosage: 100 MG 2 A DAY
  10. PRILOSEC [Concomitant]
     Indication: GASTROOESOPHAGEAL REFLUX DISEASE
     Dosage: 20 MG 1 A DAY
  11. GABAPENTIN [Concomitant]
     Indication: NEUROPATHY PERIPHERAL
     Dosage: 800 MG 4 A DAY
  12. GABAPENTIN [Concomitant]
     Indication: MYALGIA
  13. XANAX [Concomitant]
     Indication: ANXIETY
     Dosage: 1 MG 3 A DAY
  14. ZOVIRAX [Concomitant]
     Indication: PRODUCT USED FOR UNKNOWN INDICATION
     Dosage: 400 MG 2, 4 -5 TIMES A DAY

REACTIONS (2)
  - Arthropod bite [Recovering/Resolving]
  - Contusion [Recovering/Resolving]
